FAERS Safety Report 16001423 (Version 1)
Quarter: 2019Q1

REPORT INFORMATION
  Report Type: Spontaneous
  Country: US (occurrence: US)
  Receive Date: 20190224
  Receipt Date: 20190224
  Transmission Date: 20190418
  Serious: Yes (Other)
  Sender: FDA-Public Use
  Company Number: None

PATIENT
  Age: 69 Year
  Sex: Male
  Weight: 69.75 kg

DRUGS (1)
  1. APTIOM [Suspect]
     Active Substance: ESLICARBAZEPINE ACETATE
     Indication: SEIZURE
     Dosage: ?          QUANTITY:1 TABLET(S);?
     Route: 048
     Dates: start: 20181129, end: 20190212

REACTIONS (8)
  - Agitation [None]
  - Irritability [None]
  - Anger [None]
  - Insomnia [None]
  - Hyperphagia [None]
  - Abnormal behaviour [None]
  - Aggression [None]
  - Memory impairment [None]

NARRATIVE: CASE EVENT DATE: 20190101
